FAERS Safety Report 5470903-8 (Version None)
Quarter: 2007Q3

REPORT INFORMATION
  Report Type: 
  Country: None (occurrence: None)
  Receive Date: 20070925
  Receipt Date: 20070910
  Transmission Date: 20080115
  Serious: Yes (Other)
  Sender: FDA-Public Use
  Company Number: 2007R3-09977

PATIENT
  Age: 43 Year
  Sex: Female

DRUGS (3)
  1. RANITIDINE [Suspect]
     Indication: GASTRITIS
     Dosage: 300MG, QD; ORAL
     Route: 048
  2. COLCHICUM JTL LIQ [Concomitant]
  3. ALLOPURINOL (ALLOPURINIL) [Concomitant]

REACTIONS (2)
  - EYE SWELLING [None]
  - PRURITUS [None]
